FAERS Safety Report 23872878 (Version 1)
Quarter: 2024Q2

REPORT INFORMATION
  Report Type: Spontaneous
  Country: NO (occurrence: NO)
  Receive Date: 20240520
  Receipt Date: 20240520
  Transmission Date: 20240716
  Serious: Yes (Hospitalization)
  Sender: FDA-Public Use
  Company Number: NO-STERISCIENCE B.V.-2024-ST-000653

PATIENT

DRUGS (4)
  1. MIDAZOLAM [Suspect]
     Active Substance: MIDAZOLAM
     Indication: Anxiety
     Dosage: 13 MILLIGRAM, QD (AT DAY 1)
     Route: 051
  2. DEXMEDETOMIDINE [Concomitant]
     Active Substance: DEXMEDETOMIDINE
     Indication: Anxiety
     Dosage: 384 MICROGRAM (AT DAY 1 AND DAY 2)
     Route: 065
  3. DEXMEDETOMIDINE [Concomitant]
     Active Substance: DEXMEDETOMIDINE
     Indication: Palliative care
     Dosage: 768 MICROGRAM, QD (AT DAY 3 AND DAY 4)
     Route: 065
  4. OXYCODONE [Concomitant]
     Active Substance: OXYCODONE\OXYCODONE HYDROCHLORIDE
     Indication: Cancer pain
     Dosage: 365 MILLIGRAM, QD (AT DAY 1)
     Route: 065

REACTIONS (1)
  - Drug ineffective [Unknown]
